FAERS Safety Report 7064719-9 (Version None)
Quarter: 2010Q4

REPORT INFORMATION
  Report Type: 
  Country: None (occurrence: None)
  Receive Date: 20101027
  Receipt Date: 20090416
  Transmission Date: 20110411
  Serious: Yes (Death, Hospitalization)
  Sender: FDA-Public Use
  Company Number: AT-ROCHE-626364

PATIENT
  Sex: Male

DRUGS (6)
  1. AVASTIN [Suspect]
     Route: 065
     Dates: start: 20081101, end: 20081101
  2. CAPECITABINE [Suspect]
     Route: 065
     Dates: start: 20081101, end: 20081101
  3. OXALIPLATIN [Suspect]
     Route: 065
     Dates: start: 20081101, end: 20081101
  4. IRINOTECAN HCL [Suspect]
     Route: 065
     Dates: start: 20081201, end: 20081201
  5. CONCOR [Concomitant]
     Dates: start: 20080501, end: 20090401
  6. AVE5026 [Concomitant]
     Route: 058
     Dates: start: 20090303, end: 20090401

REACTIONS (3)
  - COMA HEPATIC [None]
  - MALIGNANT NEOPLASM PROGRESSION [None]
  - PERFORMANCE STATUS DECREASED [None]
